FAERS Safety Report 10179782 (Version 4)
Quarter: 2015Q1

REPORT INFORMATION
  Report Type: Spontaneous
  Country: US (occurrence: None)
  Receive Date: 20140515
  Receipt Date: 20150127
  Transmission Date: 20150720
  Serious: Yes (Hospitalization)
  Sender: FDA-Public Use
  Company Number: UTC-048419

PATIENT
  Age: 74 Year
  Sex: Male
  Weight: 74.4 kg

DRUGS (1)
  1. REMODULIN [Suspect]
     Active Substance: TREPROSTINIL
     Indication: PULMONARY ARTERIAL HYPERTENSION
     Dosage: 0.032 UG/KG, CONTINUING, SUBCUTANEOUS
     Route: 058
     Dates: start: 20131031

REACTIONS (4)
  - Fluid retention [None]
  - Peripheral swelling [None]
  - Right ventricular failure [None]
  - Disease progression [None]

NARRATIVE: CASE EVENT DATE: 201404
